FAERS Safety Report 11660218 (Version 1)
Quarter: 2015Q4

REPORT INFORMATION
  Report Type: Spontaneous
  Country: US (occurrence: US)
  Receive Date: 20151026
  Receipt Date: 20151026
  Transmission Date: 20160304
  Serious: No
  Sender: FDA-Public Use
  Company Number: US-MEDA-2011020002

PATIENT
  Age: 22 Year
  Sex: Female
  Weight: 61 kg

DRUGS (2)
  1. ASTEPRO [Suspect]
     Active Substance: AZELASTINE HYDROCHLORIDE
     Indication: NASAL CONGESTION
     Dates: start: 20110131
  2. ANTIBIOTIC [Concomitant]
     Active Substance: UNSPECIFIED INGREDIENT
     Dosage: 40 MG/20 ML
     Dates: start: 20110131, end: 20110131

REACTIONS (1)
  - Dysgeusia [Not Recovered/Not Resolved]

NARRATIVE: CASE EVENT DATE: 20110131
